FAERS Safety Report 24872979 (Version 2)
Quarter: 2025Q1

REPORT INFORMATION
  Report Type: Spontaneous
  Country: GB (occurrence: GB)
  Receive Date: 20250122
  Receipt Date: 20250305
  Transmission Date: 20250408
  Serious: Yes (Other)
  Sender: MYLAN
  Company Number: GB-MYLANLABS-2024M1117332

PATIENT
  Sex: Male

DRUGS (8)
  1. CLOZARIL [Suspect]
     Active Substance: CLOZAPINE
     Indication: Schizophrenia
     Dosage: 300 MILLIGRAM, AM (IN MORNING)
     Route: 048
     Dates: start: 20130205, end: 20241225
  2. CLOZARIL [Suspect]
     Active Substance: CLOZAPINE
     Dosage: 300 MILLIGRAM, AM (IN MORNING)
     Dates: start: 20130205, end: 20241225
  3. CLOZARIL [Suspect]
     Active Substance: CLOZAPINE
     Dosage: 300 MILLIGRAM, AM (IN MORNING)
     Dates: start: 20130205, end: 20241225
  4. CLOZARIL [Suspect]
     Active Substance: CLOZAPINE
     Dosage: 300 MILLIGRAM, AM (IN MORNING)
     Route: 048
     Dates: start: 20130205, end: 20241225
  5. CLOZARIL [Suspect]
     Active Substance: CLOZAPINE
     Dosage: 250 MILLIGRAM, PM (IN EVENING)
     Route: 048
     Dates: start: 20130205
  6. CLOZARIL [Suspect]
     Active Substance: CLOZAPINE
     Dosage: 250 MILLIGRAM, PM (IN EVENING)
     Dates: start: 20130205
  7. CLOZARIL [Suspect]
     Active Substance: CLOZAPINE
     Dosage: 250 MILLIGRAM, PM (IN EVENING)
     Dates: start: 20130205
  8. CLOZARIL [Suspect]
     Active Substance: CLOZAPINE
     Dosage: 250 MILLIGRAM, PM (IN EVENING)
     Route: 048
     Dates: start: 20130205

REACTIONS (7)
  - Mental impairment [Unknown]
  - Patient elopement [Recovered/Resolved]
  - Psychotic disorder [Unknown]
  - Abnormal behaviour [Unknown]
  - Treatment noncompliance [Unknown]
  - Product dose omission issue [Unknown]
  - Off label use [Recovered/Resolved]

NARRATIVE: CASE EVENT DATE: 20241225
